FAERS Safety Report 18662061 (Version 4)
Quarter: 2021Q2

REPORT INFORMATION
  Report Type: Report from Study
  Country: US (occurrence: US)
  Receive Date: 20201224
  Receipt Date: 20210528
  Transmission Date: 20210717
  Serious: Yes (Hospitalization, Other)
  Sender: FDA-Public Use
  Company Number: US-TAKEDA-US202023282

PATIENT
  Sex: Male

DRUGS (2)
  1. HUMAN NORMAL IMMUNOGLOBULIN; LIQUID [Suspect]
     Active Substance: HUMAN IMMUNOGLOBULIN G
     Indication: IMMUNODEFICIENCY COMMON VARIABLE
     Dosage: 50 GRAM
     Route: 065
  2. HUMAN NORMAL IMMUNOGLOBULIN; LIQUID [Suspect]
     Active Substance: HUMAN IMMUNOGLOBULIN G
     Indication: PRIMARY IMMUNODEFICIENCY SYNDROME

REACTIONS (8)
  - Gastrooesophageal reflux disease [Unknown]
  - Oesophageal spasm [Unknown]
  - Oesophageal candidiasis [Unknown]
  - Influenza like illness [Unknown]
  - Renal pain [Unknown]
  - Choking [Unknown]
  - Hypersensitivity [Unknown]
  - COVID-19 [Recovering/Resolving]
